FAERS Safety Report 8918463 (Version 5)
Quarter: 2013Q2

REPORT INFORMATION
  Report Type: Report from Study
  Country: JP (occurrence: JP)
  Receive Date: 20121120
  Receipt Date: 20130419
  Transmission Date: 20140414
  Serious: Yes (Death, Life-Threatening, Hospitalization, Other)
  Sender: FDA-Public Use
  Company Number: JP-009507513-1211JPN006880

PATIENT
  Age: 65 Year
  Sex: Female
  Weight: 56 kg

DRUGS (8)
  1. PEGINTRON [Suspect]
     Indication: CHRONIC HEPATITIS C
     Dosage: 80 MICROGRAM, QW
     Route: 058
     Dates: start: 20120809, end: 20121026
  2. REBETOL [Suspect]
     Indication: CHRONIC HEPATITIS C
     Dosage: 400 MG, QD
     Route: 048
     Dates: start: 20120809, end: 20121101
  3. TELAVIC [Suspect]
     Indication: CHRONIC HEPATITIS C
     Dosage: 1500 MG, QD
     Route: 048
     Dates: start: 20120809, end: 20121101
  4. URSO [Concomitant]
     Indication: CHRONIC HEPATITIS C
     Dosage: 600 MG, QD DIVIDED FREQUENCY UNKNOWN
     Route: 048
     Dates: end: 20121101
  5. NORVASC [Concomitant]
     Indication: HYPERTENSION
     Dosage: DIVIDED DOSE FREQUENCY UNKNOWN
     Route: 048
     Dates: end: 20121101
  6. TANATRIL [Concomitant]
     Indication: HYPERTENSION
     Dosage: DIVIDED DOSE FREQUENCY UNKNOWN
     Route: 048
     Dates: end: 20121101
  7. PROMAC (POLAPREZINC) [Concomitant]
     Indication: GASTRIC ULCER
     Dosage: 150 MG, QD
     Route: 048
     Dates: end: 20121101
  8. FEBURIC [Concomitant]
     Indication: HYPERURICAEMIA
     Dosage: 10 MG, QD
     Route: 048
     Dates: start: 20120814

REACTIONS (10)
  - Sepsis [Fatal]
  - Hyperuricaemia [Not Recovered/Not Resolved]
  - Adrenal insufficiency [Unknown]
  - Erythema [Recovering/Resolving]
  - Disseminated intravascular coagulation [Unknown]
  - Acute respiratory distress syndrome [Unknown]
  - Pyelonephritis [Unknown]
  - Renal disorder [Unknown]
  - Liver disorder [Unknown]
  - Hyperuricaemia [Unknown]
